FAERS Safety Report 9459455 (Version 3)
Quarter: 2013Q4

REPORT INFORMATION
  Report Type: Spontaneous
  Country: FR (occurrence: FR)
  Receive Date: 20130815
  Receipt Date: 20131025
  Transmission Date: 20140711
  Serious: Yes (Hospitalization)
  Sender: FDA-Public Use
  Company Number: FR-ASTRAZENECA-2013SE28302

PATIENT
  Age: 26140 Day
  Sex: Male

DRUGS (2)
  1. BRILIQUE [Suspect]
     Route: 048
     Dates: start: 201301, end: 20130407
  2. KARDEGIC [Suspect]
     Route: 048
     Dates: start: 201301, end: 20130407

REACTIONS (4)
  - Renal failure acute [Unknown]
  - Anaemia [Recovered/Resolved]
  - Peritoneal haemorrhage [Recovered/Resolved]
  - Renal haematoma [Recovered/Resolved]
